APPROVED DRUG PRODUCT: METHIMAZOLE
Active Ingredient: METHIMAZOLE
Strength: 5MG
Dosage Form/Route: TABLET;ORAL
Application: A040547 | Product #001 | TE Code: AB
Applicant: AIPING PHARMACEUTICAL INC
Approved: Feb 18, 2005 | RLD: No | RS: No | Type: RX